FAERS Safety Report 7066434-4 (Version None)
Quarter: 2010Q4

REPORT INFORMATION
  Report Type: 
  Country: None (occurrence: None)
  Receive Date: 20101027
  Receipt Date: 20100305
  Transmission Date: 20110411
  Serious: No
  Sender: FDA-Public Use
  Company Number: US-WYE-H11941109

PATIENT
  Sex: Female
  Weight: 62.65 kg

DRUGS (2)
  1. PREMPRO [Suspect]
     Indication: DEPRESSED MOOD
     Dosage: 0.3MG / 1.5 MG DAILY
     Route: 048
     Dates: start: 20091025, end: 20091028
  2. ZOLOFT [Concomitant]

REACTIONS (5)
  - ABDOMINAL DISCOMFORT [None]
  - DIZZINESS [None]
  - DYSPEPSIA [None]
  - MIGRAINE [None]
  - NAUSEA [None]
